FAERS Safety Report 6603731-8 (Version None)
Quarter: 2010Q1

REPORT INFORMATION
  Report Type: 
  Country: None (occurrence: None)
  Receive Date: 20100226
  Receipt Date: 20090107
  Transmission Date: 20100710
  Serious: No
  Sender: FDA-Public Use
  Company Number: A0762685A

PATIENT
  Age: 40 Year
  Sex: Female

DRUGS (4)
  1. LAMICTAL CD [Suspect]
     Dosage: 150MG PER DAY
     Route: 048
     Dates: end: 20090106
  2. AMBIEN [Concomitant]
  3. LYRICA [Concomitant]
  4. BIRTH CONTROL [Concomitant]

REACTIONS (2)
  - RASH [None]
  - RASH PAPULAR [None]
